FAERS Safety Report 21566991 (Version 1)
Quarter: 2022Q4

REPORT INFORMATION
  Report Type: Spontaneous
  Country: US (occurrence: US)
  Receive Date: 20221108
  Receipt Date: 20221108
  Transmission Date: 20230112
  Serious: No
  Sender: FDA-Public Use
  Company Number: US-ELI_LILLY_AND_COMPANY-US202210013514

PATIENT
  Age: 63 Year
  Sex: Female

DRUGS (1)
  1. REYVOW [Suspect]
     Active Substance: LASMIDITAN
     Indication: Product used for unknown indication
     Dosage: 100 MG, UNKNOWN
     Route: 065
     Dates: start: 20221023

REACTIONS (7)
  - Discomfort [Unknown]
  - Myalgia [Unknown]
  - Paraesthesia [Unknown]
  - Nausea [Unknown]
  - Muscle spasms [Unknown]
  - Pain in extremity [Unknown]
  - Expired product administered [Unknown]

NARRATIVE: CASE EVENT DATE: 20221023
